FAERS Safety Report 14384667 (Version 1)
Quarter: 2018Q1

REPORT INFORMATION
  Report Type: Spontaneous
  Country: US (occurrence: US)
  Receive Date: 20180115
  Receipt Date: 20180115
  Transmission Date: 20180509
  Serious: No
  Sender: FDA-Public Use
  Company Number: US-009507513-1801USA005045

PATIENT
  Age: 8 Year
  Sex: Male
  Weight: 24 kg

DRUGS (3)
  1. NOXAFIL [Suspect]
     Active Substance: POSACONAZOLE
     Dosage: 10 MG/KG DOSE EVERY 12 HOURS
     Route: 042
  2. NOXAFIL [Suspect]
     Active Substance: POSACONAZOLE
     Indication: ALTERNARIA INFECTION
     Dosage: UNK
     Route: 048
  3. NOXAFIL [Suspect]
     Active Substance: POSACONAZOLE
     Indication: ALTERNARIA INFECTION
     Dosage: 10 MG/KG EVERY 12 HOURS
     Route: 042

REACTIONS (3)
  - Drug administered to patient of inappropriate age [Unknown]
  - No adverse event [Unknown]
  - Off label use [Unknown]
